FAERS Safety Report 14187274 (Version 1)
Quarter: 2017Q4

REPORT INFORMATION
  Report Type: Spontaneous
  Country: US (occurrence: None)
  Receive Date: 20171113
  Receipt Date: 20171113
  Transmission Date: 20180321
  Serious: Yes (Hospitalization)
  Sender: FDA-Public Use
  Company Number: None

PATIENT
  Age: 46 Year
  Sex: Male

DRUGS (1)
  1. CREON [Suspect]
     Active Substance: PANCRELIPASE AMYLASE\PANCRELIPASE LIPASE\PANCRELIPASE PROTEASE
     Indication: CYSTIC FIBROSIS
     Dosage: FREQUENCY - 7 WITH MEDS 3-4 WITH SNACKS?(3 SNACKS PER DAY)?DOSE - 24,000 UNITS
     Route: 048
     Dates: start: 20140114

REACTIONS (1)
  - Hospitalisation [None]
